FAERS Safety Report 7714017-2 (Version None)
Quarter: 2011Q3

REPORT INFORMATION
  Report Type: 
  Country: None (occurrence: None)
  Receive Date: 20110826
  Receipt Date: 20110812
  Transmission Date: 20111222
  Serious: Yes (Death)
  Sender: FDA-Public Use
  Company Number: US-WATSON-2011-12971

PATIENT
  Sex: Female

DRUGS (1)
  1. FENTANYL-50 [Suspect]
     Indication: PAIN
     Dosage: UNK
     Route: 062
     Dates: end: 20100107

REACTIONS (2)
  - OVERDOSE [None]
  - ANALGESIC DRUG LEVEL INCREASED [None]
